FAERS Safety Report 10178155 (Version 1)
Quarter: 2014Q2

REPORT INFORMATION
  Report Type: Spontaneous
  Country: US (occurrence: US)
  Receive Date: 20140519
  Receipt Date: 20140519
  Transmission Date: 20141212
  Serious: Yes (Disabling)
  Sender: FDA-Public Use
  Company Number: US-009507513-1405USA007422

PATIENT
  Sex: Female

DRUGS (6)
  1. JANUVIA [Suspect]
     Indication: DIABETES MELLITUS
     Dosage: 100 MG, QD
     Route: 048
     Dates: end: 20140507
  2. METFORMIN [Concomitant]
     Dosage: UNK
  3. ASPIRIN [Concomitant]
  4. METOPROLOL [Concomitant]
     Dosage: UNK
  5. ALPRAZOLAM [Concomitant]
     Dosage: UNK
  6. NASOCORT [Concomitant]
     Dosage: UNK

REACTIONS (3)
  - Myalgia [Recovering/Resolving]
  - Tachycardia [Recovering/Resolving]
  - Abdominal pain upper [Recovering/Resolving]
